FAERS Safety Report 7717970-6 (Version None)
Quarter: 2011Q3

REPORT INFORMATION
  Report Type: 
  Country: None (occurrence: None)
  Receive Date: 20110830
  Receipt Date: 20110822
  Transmission Date: 20111222
  Serious: Yes (Hospitalization)
  Sender: FDA-Public Use
  Company Number: CZ-JNJFOC-20110804441

PATIENT
  Sex: Male
  Weight: 129 kg

DRUGS (5)
  1. PALIPERIDONE [Suspect]
     Route: 030
     Dates: start: 20101126, end: 20110426
  2. PALIPERIDONE [Suspect]
     Route: 030
     Dates: start: 20110525, end: 20110722
  3. PALIPERIDONE [Suspect]
     Indication: SCHIZOPHRENIA
     Route: 030
     Dates: start: 20101021, end: 20101021
  4. SEROQUEL [Concomitant]
     Indication: PSYCHOTIC DISORDER
     Route: 048
  5. PALIPERIDONE [Suspect]
     Route: 030
     Dates: start: 20101029, end: 20101029

REACTIONS (1)
  - SCHIZOPHRENIA [None]
